FAERS Safety Report 9076943 (Version 1)
Quarter: 2013Q1

REPORT INFORMATION
  Report Type: Report from Study
  Country: US (occurrence: US)
  Receive Date: 20130129
  Receipt Date: 20130129
  Transmission Date: 20140127
  Serious: No
  Sender: FDA-Public Use
  Company Number: US-ABBOTT-12P-163-0936393-00

PATIENT
  Age: 42 Year
  Sex: Female

DRUGS (14)
  1. HUMIRA 40 MG/0.8 ML PEN [Suspect]
     Indication: RHEUMATOID ARTHRITIS
     Route: 058
     Dates: start: 20120504
  2. ETODOLAC [Suspect]
     Indication: ANTIINFLAMMATORY THERAPY
     Route: 048
  3. METHOTREXATE [Concomitant]
     Indication: PRODUCT USED FOR UNKNOWN INDICATION
     Dosage: 2.5MG, 4 TABLETS WEEKLY
     Route: 048
  4. MELOXICAM [Concomitant]
     Indication: PRODUCT USED FOR UNKNOWN INDICATION
     Dosage: 7.5MG, ONE TWICE DAILY AS NEEDED
  5. HYDROXYZINE [Concomitant]
     Indication: HYPERSENSITIVITY
     Dosage: 10MG  ONCE DAILY
     Route: 048
  6. PRILOSEC [Concomitant]
     Indication: ANTIINFLAMMATORY THERAPY
     Dosage: 20MG DAILY
     Route: 048
  7. CALCIUM [Concomitant]
     Indication: PRODUCT USED FOR UNKNOWN INDICATION
     Dosage: DAILY
  8. VITAMIN D [Concomitant]
     Indication: PRODUCT USED FOR UNKNOWN INDICATION
     Dosage: DAILY
     Route: 048
  9. FISH OIL [Concomitant]
     Indication: PRODUCT USED FOR UNKNOWN INDICATION
     Dosage: DAILY
     Route: 048
  10. FOLIC ACID [Concomitant]
     Indication: DRUG TOXICITY PROPHYLAXIS
     Dosage: 1MG DAILY
     Route: 048
  11. VICODIN [Concomitant]
     Indication: PAIN
     Dosage: PRN
  12. EFFEXOR [Concomitant]
     Indication: PRODUCT USED FOR UNKNOWN INDICATION
  13. OXYCODONE [Concomitant]
     Indication: PAIN
     Dosage: ONCE OR TWICE A DAY PRN
     Route: 048
  14. CYMBALTA [Concomitant]
     Indication: DEPRESSION

REACTIONS (2)
  - Joint range of motion decreased [Not Recovered/Not Resolved]
  - Injection site pain [Recovered/Resolved]
